FAERS Safety Report 8225839-6 (Version None)
Quarter: 2012Q1

REPORT INFORMATION
  Report Type: 
  Country: None (occurrence: None)
  Receive Date: 20120321
  Receipt Date: 20120315
  Transmission Date: 20120608
  Serious: Yes (Hospitalization)
  Sender: FDA-Public Use
  Company Number: IL-AMGEN-ISRSP2012017774

PATIENT
  Sex: Male

DRUGS (1)
  1. PROLIA [Suspect]
     Indication: OSTEITIS DEFORMANS
     Dosage: UNK
     Route: 065

REACTIONS (3)
  - HAEMORRHAGE [None]
  - ANAEMIA [None]
  - CARDIAC FAILURE [None]
